FAERS Safety Report 5894412-7 (Version None)
Quarter: 2008Q3

REPORT INFORMATION
  Report Type: 
  Country: None (occurrence: None)
  Receive Date: 20080922
  Receipt Date: 20080910
  Transmission Date: 20090109
  Serious: Yes (Hospitalization)
  Sender: FDA-Public Use
  Company Number: SPV1-2008-01937

PATIENT
  Sex: Female

DRUGS (1)
  1. AGRYLIN [Suspect]
     Indication: THROMBOCYTHAEMIA
     Dates: end: 20080101

REACTIONS (1)
  - PANCYTOPENIA [None]
